FAERS Safety Report 10498440 (Version 1)
Quarter: 2014Q4

REPORT INFORMATION
  Report Type: Spontaneous
  Country: FR (occurrence: FR)
  Receive Date: 20141006
  Receipt Date: 20141006
  Transmission Date: 20150528
  Serious: Yes (Other)
  Sender: FDA-Public Use
  Company Number: FR-BRISTOL-MYERS SQUIBB COMPANY-21450051

PATIENT
  Age: 74 Year
  Sex: Male

DRUGS (10)
  1. ELIQUIS [Suspect]
     Active Substance: APIXABAN
     Indication: PULMONARY HYPERTENSION
     Route: 048
     Dates: start: 201409
  2. LASILIX [Concomitant]
     Active Substance: FUROSEMIDE
  3. ELIQUIS [Suspect]
     Active Substance: APIXABAN
     Indication: CARDIAC FIBRILLATION
     Route: 048
     Dates: start: 201409
  4. MOPRAL [Concomitant]
     Active Substance: OMEPRAZOLE SODIUM
  5. ELIQUIS [Suspect]
     Active Substance: APIXABAN
     Indication: CARDIAC FAILURE
     Route: 048
     Dates: start: 201409
  6. METFORMIN [Concomitant]
     Active Substance: METFORMIN HYDROCHLORIDE
  7. BETAXOLOL [Concomitant]
     Active Substance: BETAXOLOL
  8. DUROGESIC [Concomitant]
     Active Substance: FENTANYL
  9. ALLOPURINOL. [Concomitant]
     Active Substance: ALLOPURINOL
  10. XATRAL [Concomitant]
     Active Substance: ALFUZOSIN

REACTIONS (7)
  - Nausea [Unknown]
  - Intervertebral disc disorder [Unknown]
  - Off label use [Unknown]
  - Dizziness [Unknown]
  - Lacrimation increased [Unknown]
  - Rheumatoid arthritis [Unknown]
  - Rhinorrhoea [Unknown]
